FAERS Safety Report 17915260 (Version 1)
Quarter: 2020Q2

REPORT INFORMATION
  Report Type: Spontaneous
  Country: IN (occurrence: IN)
  Receive Date: 20200619
  Receipt Date: 20200619
  Transmission Date: 20200714
  Serious: Yes (Death, Hospitalization)
  Sender: FDA-Public Use
  Company Number: IN-ROCHE-2489793

PATIENT
  Age: 42 Year
  Sex: Female
  Weight: 46 kg

DRUGS (1)
  1. KADCYLA [Suspect]
     Active Substance: ADO-TRASTUZUMAB EMTANSINE
     Indication: BREAST CANCER METASTATIC
     Dosage: 8 CYCLES- 6 MONTHS
     Route: 042
     Dates: start: 20190821, end: 20191031

REACTIONS (2)
  - Fatigue [Fatal]
  - Pain [Fatal]

NARRATIVE: CASE EVENT DATE: 20191122
